FAERS Safety Report 20810044 (Version 1)
Quarter: 2022Q2

REPORT INFORMATION
  Report Type: Spontaneous
  Country: SA (occurrence: SA)
  Receive Date: 20220510
  Receipt Date: 20220510
  Transmission Date: 20220721
  Serious: Yes (Hospitalization, Other)
  Sender: FDA-Public Use
  Company Number: SA-SA-2022SA153567

PATIENT
  Age: 67 Year
  Sex: Male

DRUGS (3)
  1. ALEMTUZUMAB [Suspect]
     Active Substance: ALEMTUZUMAB
     Indication: Angioimmunoblastic T-cell lymphoma stage III
     Dosage: 30 MG, QM
     Route: 058
  2. PREDNISONE [Suspect]
     Active Substance: PREDNISONE
     Indication: Angioimmunoblastic T-cell lymphoma stage III
  3. MYCOPHENOLATE MOFETIL [Suspect]
     Active Substance: MYCOPHENOLATE MOFETIL
     Indication: Angioimmunoblastic T-cell lymphoma stage III

REACTIONS (14)
  - Septic shock [Recovered/Resolved]
  - Cytomegalovirus infection reactivation [Recovered/Resolved]
  - Pneumonia [Recovered/Resolved]
  - Pulmonary nocardiosis [Recovered/Resolved]
  - Aspergillus infection [Recovered/Resolved]
  - Pyrexia [Recovered/Resolved]
  - Productive cough [Recovered/Resolved]
  - Sputum discoloured [Recovered/Resolved]
  - Dyspnoea [Recovered/Resolved]
  - Respiratory distress [Recovered/Resolved]
  - Chills [Recovered/Resolved]
  - Neutropenia [Recovered/Resolved]
  - Lymphopenia [Recovered/Resolved]
  - Rales [Recovered/Resolved]

NARRATIVE: CASE EVENT DATE: 20060101
